FAERS Safety Report 11176768 (Version 1)
Quarter: 2015Q2

REPORT INFORMATION
  Report Type: Spontaneous
  Country: US (occurrence: None)
  Receive Date: 20150609
  Receipt Date: 20150609
  Transmission Date: 20150821
  Serious: No
  Sender: FDA-Public Use
  Company Number: None

PATIENT
  Age: 41 Year
  Sex: Female
  Weight: 99.34 kg

DRUGS (6)
  1. CHOLECALCIFEROL (VITAMIN ) [Concomitant]
  2. ONDANSETROL (ZOFRAN, AS HYDROCHLORIDE) [Concomitant]
  3. MIRENA [Suspect]
     Active Substance: LEVONORGESTREL
     Indication: MENORRHAGIA
  4. ACETAMINOPHEN-CAFFEINE-BUTALBITAL (ESGIC) [Concomitant]
  5. SYNTHROID [Concomitant]
     Active Substance: LEVOTHYROXINE SODIUM
  6. CELEXA [Concomitant]
     Active Substance: CITALOPRAM HYDROBROMIDE

REACTIONS (6)
  - Galactorrhoea [None]
  - Headache [None]
  - Embedded device [None]
  - Weight increased [None]
  - Device breakage [None]
  - Nausea [None]

NARRATIVE: CASE EVENT DATE: 20150601
